FAERS Safety Report 7369560-5 (Version None)
Quarter: 2011Q1

REPORT INFORMATION
  Report Type: 
  Country: None (occurrence: None)
  Receive Date: 20110323
  Receipt Date: 20110315
  Transmission Date: 20110831
  Serious: Yes (Death, Life-Threatening, Hospitalization)
  Sender: FDA-Public Use
  Company Number: JP-ASTRAZENECA-2010SE60960

PATIENT
  Age: 83 Year
  Sex: Male
  Weight: 68 kg

DRUGS (11)
  1. ECARD HD [Suspect]
     Indication: HYPERTENSION
     Route: 048
     Dates: start: 20090916, end: 20100731
  2. URIEF [Concomitant]
     Indication: BENIGN PROSTATIC HYPERPLASIA
     Route: 048
     Dates: start: 20090708
  3. STOMIN A [Concomitant]
     Indication: TINNITUS
     Route: 048
     Dates: start: 20081008
  4. URIEF [Concomitant]
     Route: 048
  5. DEPAKENE [Concomitant]
     Indication: EPILEPSY
     Route: 048
     Dates: start: 20081008
  6. ASPENON [Concomitant]
     Indication: ARRHYTHMIA
     Route: 048
  7. GASTER D [Concomitant]
     Indication: GASTRITIS
     Route: 048
     Dates: start: 20081008
  8. VESICARE [Concomitant]
     Indication: POLLAKIURIA
     Route: 048
  9. MAGMITT [Concomitant]
     Indication: CONSTIPATION
     Route: 048
  10. CALBLOCK [Concomitant]
     Indication: HYPERTENSION
     Route: 048
     Dates: start: 20081105
  11. LENDORMIN D [Concomitant]
     Indication: INSOMNIA
     Route: 048
     Dates: start: 20081008, end: 20100626

REACTIONS (4)
  - ATRIAL FIBRILLATION [None]
  - RESPIRATORY FAILURE [None]
  - BRONCHOPNEUMONIA [None]
  - ATYPICAL MYCOBACTERIAL INFECTION [None]
